FAERS Safety Report 5099585-4 (Version None)
Quarter: 2006Q3

REPORT INFORMATION
  Report Type: 
  Country: None (occurrence: None)
  Receive Date: 20060906
  Receipt Date: 20060825
  Transmission Date: 20061208
  Serious: Yes (Other)
  Sender: FDA-Public Use
  Company Number: 2006095601

PATIENT
  Sex: Male

DRUGS (1)
  1. CELEBREX [Suspect]
     Indication: PAIN
     Dosage: 400 MG (200 MG, 2 IN 1 D)
     Dates: start: 20060813

REACTIONS (6)
  - ANAPHYLACTIC SHOCK [None]
  - DIARRHOEA [None]
  - HYPOTENSION [None]
  - PHARYNGEAL OEDEMA [None]
  - RASH MACULO-PAPULAR [None]
  - SWELLING FACE [None]
